FAERS Safety Report 7001120-8 (Version None)
Quarter: 2010Q3

REPORT INFORMATION
  Report Type: 
  Country: None (occurrence: None)
  Receive Date: 20100920
  Receipt Date: 20100908
  Transmission Date: 20110219
  Serious: Yes (Hospitalization, Other)
  Sender: FDA-Public Use
  Company Number: US-ROCHE-701323

PATIENT
  Sex: Male
  Weight: 56.7 kg

DRUGS (3)
  1. ACCUTANE [Suspect]
     Indication: ACNE
     Route: 065
     Dates: start: 19990115
  2. ACCUTANE [Suspect]
     Route: 065
     Dates: start: 19990309, end: 19990601
  3. CLEOCIN [Concomitant]

REACTIONS (8)
  - CHEILITIS [None]
  - COLITIS [None]
  - DEPRESSION [None]
  - GASTROINTESTINAL INJURY [None]
  - INFLAMMATORY BOWEL DISEASE [None]
  - RASH [None]
  - SUICIDAL IDEATION [None]
  - XEROSIS [None]
